FAERS Safety Report 20006621 (Version 1)
Quarter: 2021Q4

REPORT INFORMATION
  Report Type: Spontaneous
  Country: DE (occurrence: DE)
  Receive Date: 20211028
  Receipt Date: 20211028
  Transmission Date: 20220303
  Serious: Yes (Life-Threatening, Hospitalization, Disabling, Other)
  Sender: FDA-Public Use
  Company Number: None

PATIENT
  Age: 35 Year
  Sex: Female

DRUGS (3)
  1. PREDNISOLONE [Suspect]
     Active Substance: PREDNISOLONE
     Indication: Rash
     Dosage: UNK
     Route: 048
     Dates: start: 20060130, end: 20060216
  2. NOVALGIN (METAMIZOLE SODIUM) [Suspect]
     Active Substance: METAMIZOLE SODIUM
     Indication: Post herpetic neuralgia
     Dosage: UNK
     Route: 048
     Dates: start: 20060127, end: 20060216
  3. BRIVUDINE [Suspect]
     Active Substance: BRIVUDINE
     Indication: Herpes zoster
     Dosage: DAILY DOSE: 125 MG MILLIGRAM(S) EVERY DAY
     Route: 048
     Dates: start: 20060119, end: 20060125

REACTIONS (3)
  - Skin discolouration [Unknown]
  - Acute hepatic failure [Recovered/Resolved with Sequelae]
  - Rash [Unknown]

NARRATIVE: CASE EVENT DATE: 20060130
